FAERS Safety Report 5815346-X (Version None)
Quarter: 2008Q3

REPORT INFORMATION
  Report Type: 
  Country: None (occurrence: None)
  Receive Date: 20080718
  Receipt Date: 20080708
  Transmission Date: 20090109
  Serious: Yes (Other)
  Sender: FDA-Public Use
  Company Number: GB-PFIZER INC-2008056145

PATIENT
  Sex: Male
  Weight: 70.5 kg

DRUGS (9)
  1. CHANTIX [Suspect]
     Indication: SMOKING CESSATION THERAPY
     Route: 048
     Dates: start: 20080620, end: 20080625
  2. CITALOPRAM HYDROBROMIDE [Concomitant]
     Indication: DEPRESSION
  3. ALL OTHER THERAPEUTIC PRODUCTS [Concomitant]
  4. TIOTROPIUM [Concomitant]
     Route: 055
  5. CARBOCISTEINE [Concomitant]
     Route: 048
     Dates: start: 20071116
  6. ALBUTEROL [Concomitant]
     Route: 055
  7. SERETIDE [Concomitant]
     Dosage: TEXT:25/250MCG
     Route: 055
  8. BECLOMETHASONE DIPROPIONATE [Concomitant]
     Route: 045
  9. UNIPHYLLIN ^NAPP^ [Concomitant]
     Dates: start: 20080519

REACTIONS (3)
  - DEPRESSION [None]
  - MALAISE [None]
  - TOBACCO USER [None]
